FAERS Safety Report 6825475-X (Version None)
Quarter: 2010Q3

REPORT INFORMATION
  Report Type: 
  Country: None (occurrence: None)
  Receive Date: 20100708
  Receipt Date: 20080207
  Transmission Date: 20110219
  Serious: No
  Sender: FDA-Public Use
  Company Number: US-PFIZER INC-2006103722

PATIENT
  Sex: Male
  Weight: 88.45 kg

DRUGS (7)
  1. CHANTIX [Suspect]
     Indication: SMOKING CESSATION THERAPY
     Dates: start: 20060814
  2. PREDNISONE [Interacting]
     Indication: RASH
  3. SOMA [Concomitant]
  4. NEURONTIN [Concomitant]
  5. LIPITOR [Concomitant]
  6. COREG [Concomitant]
  7. OXYCODONE HCL AND ACETAMINOPHEN [Concomitant]

REACTIONS (6)
  - AGITATION [None]
  - DRUG INTERACTION [None]
  - HEADACHE [None]
  - INSOMNIA [None]
  - NAUSEA [None]
  - RASH [None]
